FAERS Safety Report 19093507 (Version 2)
Quarter: 2021Q3

REPORT INFORMATION
  Report Type: Spontaneous
  Country: GB (occurrence: GB)
  Receive Date: 20210405
  Receipt Date: 20210702
  Transmission Date: 20211014
  Serious: Yes (Other)
  Sender: FDA-Public Use
  Company Number: GB-JNJFOC-20210407382

PATIENT
  Age: 61 Year
  Sex: Male

DRUGS (3)
  1. OMEPRAZOL [Concomitant]
     Active Substance: OMEPRAZOLE
     Indication: ILL-DEFINED DISORDER
     Route: 065
  2. BICALUTAMIDE. [Concomitant]
     Active Substance: BICALUTAMIDE
     Indication: ILL-DEFINED DISORDER
     Route: 065
  3. LYRINEL XL [Suspect]
     Active Substance: OXYBUTYNIN
     Indication: BLADDER SPASM
     Dosage: 5 MG
     Route: 048
     Dates: start: 20210401, end: 20210401

REACTIONS (2)
  - Nausea [Recovered/Resolved]
  - Migraine [Not Recovered/Not Resolved]

NARRATIVE: CASE EVENT DATE: 20210401
